FAERS Safety Report 10880912 (Version 1)
Quarter: 2015Q1

REPORT INFORMATION
  Report Type: Spontaneous
  Country: SA (occurrence: None)
  Receive Date: 20150225
  Receipt Date: 20150225
  Transmission Date: 20150721
  Serious: Yes (Other)
  Sender: FDA-Public Use
  Company Number: 2764047

PATIENT
  Age: 73 Year
  Sex: Female

DRUGS (3)
  1. CYTARABINE. [Suspect]
     Active Substance: CYTARABINE
     Indication: ACUTE MYELOID LEUKAEMIA
     Dosage: 20 MG/M 2 MILLIGRAM(S)/SQ. METER, UNKNOWN, SUBCUTANEOUS??
     Route: 058
  2. LIPOSOMAL DOXORUBICIN HCL [Suspect]
     Active Substance: DOXORUBICIN HYDROCHLORIDE
     Indication: ACUTE MYELOID LEUKAEMIA
     Dosage: 60 MG MILLIGRAM9S), UNKNOWN, UNKNOWN
  3. CLOFARABINE [Suspect]
     Active Substance: CLOFARABINE
     Indication: ACUTE MYELOID LEUKAEMIA
     Dosage: 30 MG/M 2 MILLIGRAM(S)/SQ. METER, UNKNOWN, INTRAVENOUS DRIP?
     Route: 041

REACTIONS (9)
  - Hepatic enzyme increased [None]
  - Thrombocytopenia [None]
  - Rash [None]
  - Sepsis [None]
  - Febrile neutropenia [None]
  - Bacterial infection [None]
  - Vomiting [None]
  - Mucosal inflammation [None]
  - Cardiac failure [None]
